FAERS Safety Report 5087234-0 (Version None)
Quarter: 2006Q3

REPORT INFORMATION
  Report Type: 
  Country: None (occurrence: None)
  Receive Date: 20060821
  Receipt Date: 20060810
  Transmission Date: 20061208
  Serious: Yes (Hospitalization)
  Sender: FDA-Public Use
  Company Number: GBWYE682611AUG06

PATIENT
  Sex: Male

DRUGS (1)
  1. EFFEXOR XR [Suspect]
     Dosage: 75 MG 1X PER 1 WK ORAL SOME YEARS
     Route: 048

REACTIONS (4)
  - BLOOD PRESSURE INCREASED [None]
  - HEAD INJURY [None]
  - VENTRICULAR ARRHYTHMIA [None]
  - VERTIGO POSITIONAL [None]
